FAERS Safety Report 23808113 (Version 1)
Quarter: 2024Q2

REPORT INFORMATION
  Report Type: Spontaneous
  Country: US (occurrence: None)
  Receive Date: 20240501
  Receipt Date: 20240501
  Transmission Date: 20240716
  Serious: Yes (Hospitalization)
  Sender: FDA-Public Use
  Company Number: None

PATIENT
  Age: 75 Year
  Sex: Male
  Weight: 164 kg

DRUGS (1)
  1. DENOSUMAB [Suspect]
     Active Substance: DENOSUMAB
     Indication: Hypercalcaemia
     Dosage: FREQUENCY : ONCE;?
     Route: 058
     Dates: start: 20240320, end: 20240320

REACTIONS (2)
  - Electrolyte imbalance [None]
  - Hypocalcaemia [None]

NARRATIVE: CASE EVENT DATE: 20240320
